FAERS Safety Report 17401086 (Version 5)
Quarter: 2020Q2

REPORT INFORMATION
  Report Type: Report from Study
  Country: PL (occurrence: PL)
  Receive Date: 20200211
  Receipt Date: 20200513
  Transmission Date: 20200713
  Serious: Yes (Hospitalization)
  Sender: FDA-Public Use
  Company Number: PL-ROCHE-2540905

PATIENT
  Age: 41 Year
  Sex: Male
  Weight: 78 kg

DRUGS (8)
  1. METHYLPREDNISOLONE. [Suspect]
     Active Substance: METHYLPREDNISOLONE
     Route: 042
     Dates: start: 20190614, end: 20190614
  2. CETIRIZINI DIHYDROCHLORIDUM [Concomitant]
     Route: 048
     Dates: start: 20190614, end: 20190614
  3. CETIRIZINI DIHYDROCHLORIDUM [Concomitant]
     Route: 065
     Dates: start: 20181217, end: 20181217
  4. BETASERC [Concomitant]
     Active Substance: BETAHISTINE
     Indication: VERTIGO
     Route: 048
     Dates: start: 20191210
  5. OCRELIZUMAB. [Suspect]
     Active Substance: OCRELIZUMAB
     Indication: RELAPSING-REMITTING MULTIPLE SCLEROSIS
     Dosage: DAYS 1 AND 15, FOLLOWED BY ONE 600-MG INFUSION DOSE EVERY 24 WEEKS FOR A MAXIMUM OF 8 DOSES THROUGHO
     Route: 042
     Dates: start: 20181217
  6. METHYLPREDNISOLONE. [Suspect]
     Active Substance: METHYLPREDNISOLONE
     Indication: PREMEDICATION
     Route: 042
     Dates: start: 20181217, end: 20181217
  7. CETIRIZINI DIHYDROCHLORIDUM [Concomitant]
     Route: 048
     Dates: start: 20190102, end: 20190102
  8. METHYLPREDNISOLONE. [Suspect]
     Active Substance: METHYLPREDNISOLONE
     Route: 042
     Dates: start: 20190102, end: 20190102

REACTIONS (2)
  - Noninfective epididymitis [Recovered/Resolved]
  - Orchitis noninfective [Recovered/Resolved]

NARRATIVE: CASE EVENT DATE: 202001
